FAERS Safety Report 13009712 (Version 1)
Quarter: 2016Q4

REPORT INFORMATION
  Report Type: Spontaneous
  Country: US (occurrence: US)
  Receive Date: 20161208
  Receipt Date: 20161208
  Transmission Date: 20170207
  Serious: Yes (Other)
  Sender: FDA-Public Use
  Company Number: US-JNJFOC-20161203245

PATIENT

DRUGS (3)
  1. HALOPERIDOL. [Suspect]
     Active Substance: HALOPERIDOL
     Indication: SEDATION
     Dosage: RANGE 5-10MG
     Route: 065
  2. KETAMINE [Suspect]
     Active Substance: KETAMINE
     Indication: AGITATION
     Route: 030
  3. MIDAZOLAM [Suspect]
     Active Substance: MIDAZOLAM\MIDAZOLAM HYDROCHLORIDE
     Indication: SEDATION
     Route: 030

REACTIONS (3)
  - Product use issue [Unknown]
  - Respiratory disorder [Unknown]
  - Off label use [Unknown]
